FAERS Safety Report 8052874 (Version 4)
Quarter: 2013Q1

REPORT INFORMATION
  Report Type: Report from Study
  Country: JP (occurrence: JP)
  Receive Date: 20110725
  Receipt Date: 20130104
  Transmission Date: 20140127
  Serious: Yes (Other)
  Sender: FDA-Public Use
  Company Number: JP-GLAXOSMITHKLINE-B0734384A

PATIENT
  Age: 34 Year
  Sex: Female
  Weight: 49 kg

DRUGS (4)
  1. TYKERB [Suspect]
     Indication: BREAST CANCER
     Route: 048
     Dates: start: 20110314, end: 20110702
  2. TYKERB [Suspect]
     Indication: BREAST CANCER
     Route: 048
     Dates: start: 20110705, end: 20110801
  3. XELODA [Concomitant]
     Route: 048
     Dates: start: 20110314, end: 20110702
  4. HIRUDOID [Concomitant]
     Indication: PROPHYLAXIS
     Route: 061
     Dates: start: 20110304

REACTIONS (2)
  - Epilepsy [Unknown]
  - Pruritus [Unknown]
